FAERS Safety Report 5796820-1 (Version None)
Quarter: 2008Q3

REPORT INFORMATION
  Report Type: 
  Country: None (occurrence: None)
  Receive Date: 20080701
  Receipt Date: 20080623
  Transmission Date: 20090109
  Serious: Yes (Hospitalization, Other)
  Sender: FDA-Public Use
  Company Number: US-ASTRAZENECA-2007UW07508

PATIENT
  Age: 400 Month
  Sex: Female
  Weight: 70.9 kg

DRUGS (13)
  1. SEROQUEL [Suspect]
     Indication: DEPRESSION
     Route: 048
     Dates: start: 20031101, end: 20031212
  2. SEROQUEL [Suspect]
     Dosage: 25 MG TID + 100 MG HS
     Route: 048
     Dates: start: 20031212, end: 20040524
  3. SEROQUEL [Suspect]
     Dosage: 25 MG 1 AM AND BID HS 100 MG HS
     Route: 048
     Dates: start: 20040609, end: 20040902
  4. SEROQUEL [Suspect]
     Route: 048
     Dates: start: 20041206, end: 20050606
  5. SEROQUEL [Suspect]
     Route: 048
     Dates: start: 20050829, end: 20051031
  6. SEROQUEL [Suspect]
     Dates: start: 20051116
  7. WELLBUTRIN XL [Concomitant]
     Dates: start: 20040524, end: 20050613
  8. WELLBUTRIN SR [Concomitant]
     Dates: start: 20050607, end: 20060109
  9. CELEXA [Concomitant]
     Dates: start: 20030101
  10. DESYREL [Concomitant]
     Dates: start: 20030101, end: 20060101
  11. EFFEXOR [Concomitant]
     Dates: start: 20030101
  12. PAXIL [Concomitant]
     Dates: start: 20070814, end: 20070910
  13. CYMBALTA [Concomitant]
     Dates: start: 20070912, end: 20080107

REACTIONS (4)
  - HYSTERECTOMY [None]
  - PELVIC MASS [None]
  - SYNCOPE [None]
  - TYPE 2 DIABETES MELLITUS [None]
